FAERS Safety Report 14751778 (Version 1)
Quarter: 2018Q2

REPORT INFORMATION
  Report Type: Spontaneous
  Country: US (occurrence: US)
  Receive Date: 20180406
  Receipt Date: 20180406
  Transmission Date: 20180711
  Serious: Yes (Hospitalization)
  Sender: FDA-Public Use
  Company Number: None

PATIENT
  Age: 71 Year
  Sex: Female
  Weight: 65.3 kg

DRUGS (4)
  1. LEUCOVORIN CALCIUM. [Suspect]
     Active Substance: LEUCOVORIN CALCIUM
     Dates: end: 20171226
  2. 5-FLUOROURACIL (5-FU) [Suspect]
     Active Substance: FLUOROURACIL
     Dates: end: 20171226
  3. XELODA [Suspect]
     Active Substance: CAPECITABINE
     Dates: end: 20180315
  4. ELOXATIN [Suspect]
     Active Substance: OXALIPLATIN
     Dates: end: 20171226

REACTIONS (6)
  - Nausea [None]
  - Diarrhoea [None]
  - Enteritis [None]
  - Vomiting [None]
  - Gastroenteritis viral [None]
  - Gastroenteritis radiation [None]

NARRATIVE: CASE EVENT DATE: 20180326
